FAERS Safety Report 12147306 (Version 7)
Quarter: 2017Q1

REPORT INFORMATION
  Report Type: Report from Study
  Country: US (occurrence: US)
  Receive Date: 20160304
  Receipt Date: 20170106
  Transmission Date: 20170428
  Serious: Yes (Other)
  Sender: FDA-Public Use
  Company Number: US-SA-2015SA205782

PATIENT
  Age: 52 Year
  Sex: Female

DRUGS (3)
  1. LEMTRADA [Suspect]
     Active Substance: ALEMTUZUMAB
     Indication: MULTIPLE SCLEROSIS
     Route: 041
     Dates: start: 20151207, end: 20151207
  2. LEMTRADA [Suspect]
     Active Substance: ALEMTUZUMAB
     Indication: MULTIPLE SCLEROSIS
     Route: 041
     Dates: start: 20151201, end: 20151203
  3. LEMTRADA [Suspect]
     Active Substance: ALEMTUZUMAB
     Indication: MULTIPLE SCLEROSIS
     Route: 041
     Dates: start: 20151130, end: 20151130

REACTIONS (17)
  - Hypersensitivity [Unknown]
  - Rash generalised [Recovered/Resolved]
  - Injection site bruising [Not Recovered/Not Resolved]
  - Therapeutic response unexpected [Unknown]
  - Urticaria [Recovered/Resolved]
  - Alopecia [Recovering/Resolving]
  - Musculoskeletal disorder [Recovered/Resolved]
  - Thrombosis [Recovered/Resolved]
  - Weight increased [Not Recovered/Not Resolved]
  - Thyroid disorder [Not Recovered/Not Resolved]
  - Poor venous access [Not Recovered/Not Resolved]
  - Vein collapse [Unknown]
  - Sinus disorder [Recovered/Resolved]
  - Paralysis [Recovered/Resolved]
  - Blood pressure abnormal [Recovered/Resolved]
  - Pyrexia [Recovered/Resolved]
  - Blood glucose increased [Unknown]

NARRATIVE: CASE EVENT DATE: 2015
